FAERS Safety Report 19207986 (Version 1)
Quarter: 2021Q2

REPORT INFORMATION
  Report Type: Spontaneous
  Country: US (occurrence: US)
  Receive Date: 20210503
  Receipt Date: 20210503
  Transmission Date: 20210717
  Serious: No
  Sender: FDA-Public Use
  Company Number: US-ABBVIE-20K-163-3613968-00

PATIENT
  Sex: Male

DRUGS (1)
  1. CREON [Suspect]
     Active Substance: PANCRELIPASE AMYLASE\PANCRELIPASE LIPASE\PANCRELIPASE PROTEASE
     Indication: PANCREATIC FAILURE
     Dosage: 24000 THREE TIMES A DAY AT MEALS
     Route: 048
     Dates: start: 20200830

REACTIONS (1)
  - Glycosylated haemoglobin decreased [Recovering/Resolving]

NARRATIVE: CASE EVENT DATE: 20200830
